FAERS Safety Report 4424664-1 (Version None)
Quarter: 2004Q3

REPORT INFORMATION
  Report Type: 
  Country: None (occurrence: None)
  Receive Date: 20040805
  Receipt Date: 20040729
  Transmission Date: 20050211
  Serious: Yes (Hospitalization)
  Sender: FDA-Public Use
  Company Number: TCI2004A02914

PATIENT
  Age: 71 Year
  Sex: Female

DRUGS (11)
  1. ACTOS [Suspect]
     Indication: DIABETES MELLITUS
     Dosage: 7.5 MG (7.5 MG, 1 IN 1 D);  15 MG (15 MG, 1 IN 1 D) PER ORAL
     Route: 048
     Dates: end: 20040606
  2. ACTOS [Suspect]
     Indication: DIABETES MELLITUS
     Dosage: 7.5 MG (7.5 MG, 1 IN 1 D);  15 MG (15 MG, 1 IN 1 D) PER ORAL
     Route: 048
     Dates: start: 20040607, end: 20040722
  3. TICLOPIDINE HCL [Suspect]
     Indication: CORONARY ANGIOPLASTY
     Dosage: 200 MG (200 MG, 1 D) PER ORAL
     Route: 048
     Dates: start: 20040612, end: 20040722
  4. LIPITOR [Suspect]
     Dosage: 5 MG (5 MG, 1 D)   : 10 MG (10MG, 1 D) PER ORAL
     Route: 048
     Dates: end: 20040606
  5. LIPITOR [Suspect]
     Dosage: 5 MG (5 MG, 1 D)   : 10 MG (10MG, 1 D) PER ORAL
     Route: 048
     Dates: start: 20040607, end: 20040722
  6. ASPIRIN [Concomitant]
  7. ISOSORBIDE MONONITRATE [Concomitant]
  8. AZULENE/GLUTAMINE              (AZULENE SULFONATE SODIUM/L-GLUTAMINE) [Concomitant]
  9. NORVASC [Concomitant]
  10. PROTOPORPHYRIN DISODIUM [Concomitant]
  11. SENNA LEAF [Concomitant]

REACTIONS (3)
  - ANGINA PECTORIS [None]
  - CORONARY ARTERY STENOSIS [None]
  - HEPATITIS B [None]
